FAERS Safety Report 13633468 (Version 1)
Quarter: 2017Q2

REPORT INFORMATION
  Report Type: Spontaneous
  Country: US (occurrence: US)
  Receive Date: 20170531
  Receipt Date: 20170531
  Transmission Date: 20170830
  Serious: No
  Sender: FDA-Public Use
  Company Number: US-ASTELLAS-1548107

PATIENT
  Sex: Female

DRUGS (4)
  1. ZOCOR [Concomitant]
     Active Substance: SIMVASTATIN
  2. SYNTHROID [Concomitant]
     Active Substance: LEVOTHYROXINE SODIUM
  3. PLAVIX [Concomitant]
     Active Substance: CLOPIDOGREL BISULFATE
  4. TARCEVA [Suspect]
     Active Substance: ERLOTINIB HYDROCHLORIDE
     Indication: BONE CANCER
     Route: 065

REACTIONS (2)
  - Hair growth abnormal [Not Recovered/Not Resolved]
  - Hair texture abnormal [Unknown]
